FAERS Safety Report 7399751 (Version 2)
Quarter: 2020Q3

REPORT INFORMATION
  Report Type: Report from Study
  Country: FR (occurrence: FR)
  Receive Date: 20100526
  Receipt Date: 20100602
  Transmission Date: 20201104
  Serious: Yes (Hospitalization)
  Sender: FDA-Public Use
  Company Number: FR-WYE-H15234110

PATIENT
  Age: 73 Year
  Sex: Female
  Weight: 65 kg

DRUGS (9)
  1. DIPROSONE [Concomitant]
     Active Substance: BETAMETHASONE DIPROPIONATE
     Indication: RASH
     Dosage: NOT PROVIDED
     Route: 065
     Dates: start: 20100202
  2. AERIUS (DESLORATADINE) [Concomitant]
     Active Substance: DESLORATADINE
     Indication: PRURITUS
     Dosage: NOT PROVIDED
     Route: 065
     Dates: start: 20091201
  3. FENOFIBRATE. [Concomitant]
     Active Substance: FENOFIBRATE
     Indication: HYPERCHOLESTEROLAEMIA
     Dosage: NOT PROVIDED
     Route: 065
     Dates: start: 20091027
  4. ATARAX [Concomitant]
     Active Substance: HYDROXYZINE HYDROCHLORIDE
     Indication: PRURITUS
     Dosage: NOT PROVIDED
     Route: 065
     Dates: start: 20091222
  5. LEVOTHYROX [Concomitant]
     Active Substance: LEVOTHYROXINE
     Indication: HYPOTHYROIDISM
     Dosage: NOT PROVIDED
     Route: 065
  6. DEXAMYL [Concomitant]
     Active Substance: AMOBARBITAL\DEXTROAMPHETAMINE SULFATE
     Indication: RASH
     Dosage: NOT PROVIDED
     Route: 065
     Dates: start: 20091222
  7. BEVACIZUMAB. [Suspect]
     Active Substance: BEVACIZUMAB
     Indication: RENAL CELL CARCINOMA
     Route: 042
     Dates: start: 20090929
  8. TEMSIROLIMUS. [Suspect]
     Active Substance: TEMSIROLIMUS
     Indication: RENAL CELL CARCINOMA
     Route: 042
     Dates: start: 20090929
  9. XYZAL [Concomitant]
     Active Substance: LEVOCETIRIZINE DIHYDROCHLORIDE
     Indication: PRURITUS
     Dosage: NOT PROVIDED
     Route: 065
     Dates: start: 20100319

REACTIONS (1)
  - Escherichia urinary tract infection [Recovered/Resolved]

NARRATIVE: CASE EVENT DATE: 20100511
